FAERS Safety Report 14630471 (Version 2)
Quarter: 2018Q1

REPORT INFORMATION
  Report Type: Spontaneous
  Country: US (occurrence: US)
  Receive Date: 20180313
  Receipt Date: 20180314
  Transmission Date: 20180509
  Serious: Yes (Hospitalization, Other)
  Sender: FDA-Public Use
  Company Number: US-VIIV HEALTHCARE LIMITED-US2018GSK041682

PATIENT
  Age: 50 Year
  Sex: Male

DRUGS (1)
  1. TRIUMEQ [Suspect]
     Active Substance: ABACAVIR SULFATE\DOLUTEGRAVIR SODIUM\LAMIVUDINE
     Indication: HIV INFECTION
     Dosage: UNK
     Dates: start: 20141001

REACTIONS (10)
  - Loss of personal independence in daily activities [Unknown]
  - Hip fracture [Unknown]
  - Rehabilitation therapy [Not Recovered/Not Resolved]
  - Somnolence [Unknown]
  - Surgery [Unknown]
  - Incoherent [Unknown]
  - Crying [Unknown]
  - Pain [Unknown]
  - Emotional disorder [Unknown]
  - Fall [Unknown]

NARRATIVE: CASE EVENT DATE: 201802
